FAERS Safety Report 25027030 (Version 1)
Quarter: 2025Q1

REPORT INFORMATION
  Report Type: Spontaneous
  Country: US (occurrence: US)
  Receive Date: 20250301
  Receipt Date: 20250301
  Transmission Date: 20250409
  Serious: No
  Sender: SANOFI AVENTIS
  Company Number: US-SA-2025SA058041

PATIENT
  Sex: Female
  Weight: 106 kg

DRUGS (11)
  1. DUPIXENT [Suspect]
     Active Substance: DUPILUMAB
     Indication: Dermatitis atopic
     Dosage: 300 MG, QOW
     Route: 058
  2. ROSUVASTATIN CALCIUM [Concomitant]
     Active Substance: ROSUVASTATIN CALCIUM
  3. METFORMIN [Concomitant]
     Active Substance: METFORMIN HYDROCHLORIDE
  4. CARVEDILOL [Concomitant]
     Active Substance: CARVEDILOL
  5. FENOFIBRATE [Concomitant]
     Active Substance: FENOFIBRATE
  6. PREDNISONE [Concomitant]
     Active Substance: PREDNISONE
  7. ARIPIPRAZOLE [Concomitant]
     Active Substance: ARIPIPRAZOLE
  8. VENLAFAXINE [Concomitant]
     Active Substance: VENLAFAXINE HYDROCHLORIDE
  9. MINOXIDIL [Concomitant]
     Active Substance: MINOXIDIL
  10. ESTRADIOL [Concomitant]
     Active Substance: ESTRADIOL
  11. ONDANSETRON [Concomitant]
     Active Substance: ONDANSETRON

REACTIONS (3)
  - Drug hypersensitivity [Unknown]
  - Periorbital irritation [Unknown]
  - Arthralgia [Unknown]
